FAERS Safety Report 6740133-8 (Version None)
Quarter: 2010Q2

REPORT INFORMATION
  Report Type: 
  Country: None (occurrence: None)
  Receive Date: 20100520
  Receipt Date: 20091013
  Transmission Date: 20101027
  Serious: Yes (Hospitalization, Other)
  Sender: FDA-Public Use
  Company Number: 2006152151

PATIENT
  Age: 30 Year
  Sex: Female
  Weight: 44 kg

DRUGS (1)
  1. DEPO-PROVERA [Suspect]
     Indication: CONTRACEPTION
     Dosage: , INTRAMUSCULAR
     Route: 030
     Dates: start: 19950101, end: 20050101

REACTIONS (3)
  - FRACTURE [None]
  - OSTEOPOROSIS [None]
  - OSTEOPOROTIC FRACTURE [None]
